FAERS Safety Report 4518113-2 (Version None)
Quarter: 2004Q4

REPORT INFORMATION
  Report Type: 
  Country: None (occurrence: None)
  Receive Date: 20041130
  Receipt Date: 20041117
  Transmission Date: 20050328
  Serious: Yes (Other)
  Sender: FDA-Public Use
  Company Number: HQWYE622322NOV04

PATIENT
  Age: 72 Year
  Sex: Male

DRUGS (6)
  1. AMIODARONE (AMIODARONE) [Suspect]
     Indication: ARRHYTHMIA
     Dosage: DOSE HALVED ORAL
     Route: 048
     Dates: start: 19990101, end: 20030101
  2. LIPITOR [Suspect]
     Dates: end: 20040923
  3. ATENOLOL [Concomitant]
  4. CITALOPRAM [Concomitant]
  5. DIOVAN [Concomitant]
  6. WARFARIN SODIUM [Concomitant]

REACTIONS (10)
  - BACK PAIN [None]
  - CONTUSION [None]
  - FEELING ABNORMAL [None]
  - FEELING HOT [None]
  - LIVER DISORDER [None]
  - MUSCULAR WEAKNESS [None]
  - NASAL CONGESTION [None]
  - NECROSIS [None]
  - ONYCHOMYCOSIS [None]
  - PAIN IN EXTREMITY [None]
